FAERS Safety Report 24542931 (Version 1)
Quarter: 2024Q4

REPORT INFORMATION
  Report Type: Report from Study
  Country: US (occurrence: US)
  Receive Date: 20241024
  Receipt Date: 20241024
  Transmission Date: 20250114
  Serious: Yes (Other)
  Sender: CSL BEHRING
  Company Number: US-BEH-2024173971

PATIENT
  Age: 73 Year
  Sex: Male
  Weight: 68.038 kg

DRUGS (2)
  1. HIZENTRA [Suspect]
     Active Substance: HUMAN IMMUNOGLOBULIN G
     Indication: Immunoglobulins
     Dosage: UNK
     Route: 058
     Dates: start: 2024
  2. HIZENTRA [Suspect]
     Active Substance: HUMAN IMMUNOGLOBULIN G
     Dosage: 50 ML, QW
     Route: 058
     Dates: start: 20241018

REACTIONS (12)
  - Muscle haemorrhage [Unknown]
  - Injection site haemorrhage [Recovering/Resolving]
  - Injection site erythema [Recovering/Resolving]
  - Injection site swelling [Recovering/Resolving]
  - Injection site warmth [Recovering/Resolving]
  - Injection site erythema [Unknown]
  - Injection site swelling [Unknown]
  - Injection site warmth [Unknown]
  - Infusion site mass [Recovering/Resolving]
  - Product administration error [Unknown]
  - Memory impairment [Unknown]
  - Incorrect dose administered [Unknown]
